FAERS Safety Report 19250906 (Version 1)
Quarter: 2021Q2

REPORT INFORMATION
  Report Type: Spontaneous
  Country: DE (occurrence: DE)
  Receive Date: 20210513
  Receipt Date: 20210513
  Transmission Date: 20210717
  Serious: Yes (Death, Life-Threatening, Hospitalization, Other)
  Sender: FDA-Public Use
  Company Number: DE-SUN PHARMACEUTICAL INDUSTRIES LTD-2021RR-296168

PATIENT
  Sex: Female
  Weight: 75 kg

DRUGS (5)
  1. LETROZOLE. [Suspect]
     Active Substance: LETROZOLE
     Indication: BREAST CANCER
     Dosage: 2.5 MILLIGRAM, DAILY, 2.5 MG, QD
     Route: 048
     Dates: start: 20200723
  2. LETROZOLE. [Suspect]
     Active Substance: LETROZOLE
     Dosage: 2.5 MILLIGRAM, DAILY, 2.5 MG, QD
     Route: 048
     Dates: start: 20200514, end: 20200622
  3. IBRANCE [Suspect]
     Active Substance: PALBOCICLIB
     Indication: BREAST CANCER METASTATIC
     Dosage: 125 MG, UNK
     Route: 048
     Dates: start: 20200203, end: 20201002
  4. DEXAMETHASONE. [Concomitant]
     Active Substance: DEXAMETHASONE
     Indication: DYSPNOEA
     Dosage: UNK
     Route: 065
     Dates: start: 20201003
  5. KISQALI [Suspect]
     Active Substance: RIBOCICLIB
     Indication: BREAST CANCER
     Dosage: 600 MILLIGRAM, DAILY, 600 MG, QD (21 DAYS INTAKE, 7 DAYS PAUSE)
     Route: 048
     Dates: start: 20200514

REACTIONS (12)
  - General physical health deterioration [Fatal]
  - Gamma-glutamyltransferase increased [Not Recovered/Not Resolved]
  - Leukopenia [Recovered/Resolved]
  - Fatigue [Not Recovered/Not Resolved]
  - Neutropenia [Recovered/Resolved]
  - C-reactive protein increased [Unknown]
  - Anaemia [Not Recovered/Not Resolved]
  - Pneumonia [Recovered/Resolved]
  - Blood glucose increased [Recovering/Resolving]
  - Thrombocytopenia [Recovered/Resolved]
  - Dyspnoea [Not Recovered/Not Resolved]
  - Thrombocytopenia [Recovered/Resolved]

NARRATIVE: CASE EVENT DATE: 20200525
